FAERS Safety Report 12318483 (Version 1)
Quarter: 2016Q2

REPORT INFORMATION
  Report Type: Spontaneous
  Country: CH (occurrence: CH)
  Receive Date: 20160429
  Receipt Date: 20160429
  Transmission Date: 20160815
  Serious: Yes (Hospitalization)
  Sender: FDA-Public Use
  Company Number: CH-BAYER-2016-077292

PATIENT
  Age: 81 Year
  Sex: Male

DRUGS (21)
  1. DUODART [Interacting]
     Active Substance: DUTASTERIDE\TAMSULOSIN
     Dosage: 1 DF, QD
     Route: 048
     Dates: start: 20160220
  2. CLEXANE [Interacting]
     Active Substance: ENOXAPARIN SODIUM
     Indication: ATRIAL FIBRILLATION
     Dosage: 80 MG, BID
  3. SELIPRAN [Concomitant]
     Active Substance: PRAVASTATIN SODIUM
     Dosage: 10 MG, QD
     Route: 048
     Dates: start: 20160209
  4. MORPHINE [Concomitant]
     Active Substance: MORPHINE
     Indication: ATRIAL FIBRILLATION
     Dosage: 5 MG, QID
     Dates: start: 20160203
  5. MORPHINE [Concomitant]
     Active Substance: MORPHINE
     Indication: ATRIAL FIBRILLATION
     Dosage: 2.5 MG, TID
     Dates: start: 20160217
  6. TOREM [Concomitant]
     Active Substance: TORSEMIDE
     Dosage: UNK
  7. MORPHINE [Concomitant]
     Active Substance: MORPHINE
     Indication: ATRIAL FIBRILLATION
     Dosage: 2.5 MG, 6ID
     Dates: start: 20160220
  8. ASPIRIN CARDIO [Suspect]
     Active Substance: ASPIRIN
     Dosage: 100 MG, QD
     Route: 048
  9. SERTRALINE [Interacting]
     Active Substance: SERTRALINE HYDROCHLORIDE
     Dosage: 25 MG, QD
     Route: 048
  10. CLEXANE [Interacting]
     Active Substance: ENOXAPARIN SODIUM
     Indication: ATRIAL FIBRILLATION
     Dosage: 40 MG, QD
     Route: 058
     Dates: start: 20160203
  11. DIOVAN [Concomitant]
     Active Substance: VALSARTAN
     Dosage: 80 MG, QD
     Route: 048
  12. BACTRIM [Concomitant]
     Active Substance: SULFAMETHOXAZOLE\TRIMETHOPRIM
     Dosage: 1 DF, BID
     Route: 048
     Dates: start: 20160220, end: 20160222
  13. LIQUEMINE [Concomitant]
     Active Substance: HEPARIN SODIUM
     Dosage: 20000 UNK, UNK
  14. SEVREDOL [Interacting]
     Active Substance: MORPHINE
     Indication: SPINAL PAIN
     Dosage: 5 MG, TID
     Route: 048
     Dates: start: 20160224, end: 20160304
  15. LYRICA [Concomitant]
     Active Substance: PREGABALIN
     Dosage: 150 MG, BID
     Route: 048
  16. AMIODARONE [Concomitant]
     Active Substance: AMIODARONE
     Dosage: UNK
  17. DAFALGAN [Concomitant]
     Active Substance: ACETAMINOPHEN
     Indication: ANALGESIC THERAPY
     Dosage: 3 G/24HR, UNK
     Dates: start: 20160209
  18. ACTIQ [Concomitant]
     Active Substance: FENTANYL CITRATE
     Dosage: 200 ?G, TID
  19. SEVREDOL [Interacting]
     Active Substance: MORPHINE
     Indication: SPINAL PAIN
     Dosage: 5 MG, TID
     Dates: start: 20160229
  20. ZITHROMAX [Concomitant]
     Active Substance: AZITHROMYCIN DIHYDRATE
     Dosage: 500 MG, TIW
     Route: 048
  21. ALDACTONE [Concomitant]
     Active Substance: SPIRONOLACTONE
     Dosage: 25 MG, QD
     Route: 048

REACTIONS (2)
  - Haematuria [Recovered/Resolved]
  - Confusional state [Recovered/Resolved]

NARRATIVE: CASE EVENT DATE: 20160206
